FAERS Safety Report 7606251-7 (Version None)
Quarter: 2011Q3

REPORT INFORMATION
  Report Type: 
  Country: None (occurrence: None)
  Receive Date: 20110713
  Receipt Date: 20110629
  Transmission Date: 20111222
  Serious: Yes (Hospitalization, Other)
  Sender: FDA-Public Use
  Company Number: US-BAYER-201030658NA

PATIENT
  Age: 32 Year
  Sex: Female
  Weight: 63.492 kg

DRUGS (11)
  1. THYROGEN [Concomitant]
  2. HYDROCODONE BITARTRATE + IBUPROFEN [Concomitant]
     Dosage: UNK
     Dates: start: 20080410
  3. YAZ [Suspect]
     Indication: PRODUCT USED FOR UNKNOWN INDICATION
     Dosage: UNK UNK, UNK
     Route: 048
     Dates: end: 20080101
  4. LIDOCAINE [Concomitant]
     Dosage: UNK
     Dates: start: 20080504
  5. SYNTHROID [Concomitant]
     Dosage: 250 MCG/24HR, QD
  6. LORAZEPAM [Concomitant]
     Dosage: UNK
     Dates: start: 20080506
  7. ATIVAN [Concomitant]
     Dosage: 1 MG, PRN
  8. PROPRANOLOL [Concomitant]
  9. STEROID/ BENEDRYL PREMEDICATIONS [Concomitant]
     Indication: PREMEDICATION
  10. HYDROCODONE BITARTRATE AND ACETAMINOPHEN [Concomitant]
     Dates: start: 20080401
  11. CALCIUM CARBONATE [Concomitant]

REACTIONS (4)
  - CEREBROVASCULAR ACCIDENT [None]
  - PAIN [None]
  - HEMIPLEGIA [None]
  - BLINDNESS TRANSIENT [None]
